FAERS Safety Report 25800929 (Version 1)
Quarter: 2025Q3

REPORT INFORMATION
  Report Type: Spontaneous
  Country: CN (occurrence: CN)
  Receive Date: 20250915
  Receipt Date: 20250915
  Transmission Date: 20251021
  Serious: Yes (Other)
  Sender: BAXTER
  Company Number: None

PATIENT
  Age: 75 Year
  Sex: Female
  Weight: 42.8 kg

DRUGS (10)
  1. CYCLOPHOSPHAMIDE [Suspect]
     Active Substance: CYCLOPHOSPHAMIDE
     Indication: Diffuse large B-cell lymphoma
     Dosage: 0.58 G, QD, (WITH NS 500ML), (ROUTE: INTRAVENOUS INJECTION)
     Route: 042
     Dates: start: 20250819, end: 20250819
  2. SODIUM CHLORIDE [Suspect]
     Active Substance: SODIUM CHLORIDE
     Dosage: 500 ML, QD (NS WITH RITUXIMAB INJECTION)
     Route: 041
     Dates: start: 20250818, end: 20250818
  3. SODIUM CHLORIDE [Suspect]
     Active Substance: SODIUM CHLORIDE
     Dosage: 500 ML, QD (NS WITH CYCLOPHOSPHAMIDE FOR INJECTION), (ROUTE: INTRAVENOUS INJECTION)
     Route: 042
     Dates: start: 20250819, end: 20250819
  4. SODIUM CHLORIDE [Suspect]
     Active Substance: SODIUM CHLORIDE
     Dosage: 250 ML, QD, (NS WITH DOXORUBICIN HYDROCHLORIDE FOR INJECTION), (ROUTE: INTRAVENOUS INJECTION)
     Route: 042
     Dates: start: 20250819, end: 20250819
  5. SODIUM CHLORIDE [Suspect]
     Active Substance: SODIUM CHLORIDE
     Dosage: 100 ML, QD, (NS WITH VINCRISTINE SULFATE FOR INJECTION), (ROUTE: INTRAVENOUS INJECTION)
     Route: 042
     Dates: start: 20250819, end: 20250819
  6. DEXTROSE [Suspect]
     Active Substance: DEXTROSE MONOHYDRATE
     Dosage: 100 ML, QD (GS WITH DEXAMETHASONE SODIUM PHOSPHATE INJECTION), (ROUTE: INTRAVENOUS INJECTION)
     Route: 042
     Dates: start: 20250819, end: 20250819
  7. RITUXIMAB [Suspect]
     Active Substance: RITUXIMAB
     Indication: Diffuse large B-cell lymphoma
     Dosage: 500 MG, QD, (WITH NS 500ML)
     Route: 041
     Dates: start: 20250818, end: 20250818
  8. DEXAMETHASONE SODIUM PHOSPHATE [Suspect]
     Active Substance: DEXAMETHASONE SODIUM PHOSPHATE
     Indication: Diffuse large B-cell lymphoma
     Dosage: 15 MG, QD, (WITH GS 100ML), (ROUTE: INTRAVENOUS INJECTION)
     Route: 042
     Dates: start: 20250819, end: 20250819
  9. DOXORUBICIN HYDROCHLORIDE [Suspect]
     Active Substance: DOXORUBICIN HYDROCHLORIDE
     Indication: Diffuse large B-cell lymphoma
     Dosage: 36.5 MG, QD, (WITH NS 250ML), (ROUTE: INTRAVENOUS INJECTION)
     Route: 042
     Dates: start: 20250819, end: 20250819
  10. VINCRISTINE SULFATE [Suspect]
     Active Substance: VINCRISTINE SULFATE
     Indication: Diffuse large B-cell lymphoma
     Dosage: 1 MG, QD, (WITH NS 100ML), (ROUTE: INTRAVENOUS INJECTION)
     Route: 042
     Dates: start: 20250819, end: 20250819

REACTIONS (1)
  - Myelosuppression [Recovering/Resolving]

NARRATIVE: CASE EVENT DATE: 20250830
